FAERS Safety Report 20789968 (Version 1)
Quarter: 2022Q2

REPORT INFORMATION
  Report Type: Spontaneous
  Country: US (occurrence: US)
  Receive Date: 20220505
  Receipt Date: 20220505
  Transmission Date: 20220721
  Serious: Yes (Hospitalization, Other)
  Sender: FDA-Public Use
  Company Number: US-GLAXOSMITHKLINE-US2022AMR073214

PATIENT
  Age: 75 Year
  Sex: Male
  Weight: 71.9 kg

DRUGS (1)
  1. SOTROVIMAB [Suspect]
     Active Substance: SOTROVIMAB
     Indication: COVID-19
     Dosage: 500 MG,ONCE
     Route: 041
     Dates: start: 20220116, end: 20220116

REACTIONS (5)
  - Encephalopathy [Unknown]
  - Lethargy [Unknown]
  - Decreased activity [Unknown]
  - Mental disorder [Unknown]
  - Hospice care [Unknown]

NARRATIVE: CASE EVENT DATE: 20220101
